FAERS Safety Report 4276181-X (Version None)
Quarter: 2004Q1

REPORT INFORMATION
  Report Type: 
  Country: None (occurrence: None)
  Receive Date: 20040121
  Receipt Date: 20020219
  Transmission Date: 20041129
  Serious: Yes (Hospitalization, Other)
  Sender: FDA-Public Use
  Company Number: US-GLAXOSMITHKLINE-A0360007A

PATIENT
  Age: 41 Year
  Sex: Male

DRUGS (15)
  1. ABACAVIR [Suspect]
     Route: 048
     Dates: start: 20010821, end: 20010916
  2. TENOFOVIR [Concomitant]
     Indication: HIV INFECTION
     Dosage: 300MG PER DAY
     Route: 048
     Dates: start: 20010904
  3. MOTOFEN [Concomitant]
     Route: 048
     Dates: start: 20010913
  4. AMBIEN [Concomitant]
     Route: 048
  5. XANAX [Concomitant]
     Route: 048
  6. ACYCLOVIR [Concomitant]
     Dates: start: 19960725
  7. GLUCOVANCE [Concomitant]
     Dates: start: 20020201
  8. ZERIT [Concomitant]
     Dates: start: 19941001, end: 20010821
  9. SUSTIVA [Concomitant]
     Dates: start: 19980603, end: 20010821
  10. VIDEX [Concomitant]
     Dates: start: 19980603, end: 20010821
  11. HYDROXYUREA [Concomitant]
     Dates: start: 19980603, end: 20000110
  12. ADEFOVIR [Concomitant]
     Dates: start: 19980603
  13. AGENERASE [Concomitant]
     Dates: start: 20010821
  14. RITONAVIR [Concomitant]
     Dates: start: 20010821
  15. LAMIVUDINE [Concomitant]
     Dates: start: 20010821

REACTIONS (9)
  - CHILLS [None]
  - DEHYDRATION [None]
  - DIARRHOEA [None]
  - HYPERSENSITIVITY [None]
  - INSOMNIA [None]
  - NAUSEA [None]
  - PYREXIA [None]
  - RASH [None]
  - VOMITING [None]
